FAERS Safety Report 8546185-7 (Version None)
Quarter: 2012Q3

REPORT INFORMATION
  Report Type: 
  Country: None (occurrence: None)
  Receive Date: 20120727
  Receipt Date: 20120718
  Transmission Date: 20120928
  Serious: Yes (Hospitalization, Other)
  Sender: FDA-Public Use
  Company Number: PHHO2011TW04462

PATIENT
  Sex: Male
  Weight: 72.109 kg

DRUGS (20)
  1. VALSARTAN [Suspect]
     Dosage: UNK
     Route: 048
     Dates: start: 20110906, end: 20110906
  2. CARVEDILOL [Suspect]
  3. SPIRONOLACTONE [Concomitant]
     Indication: CARDIAC FAILURE CONGESTIVE
     Dosage: 25 MG, BID
     Route: 048
     Dates: start: 20110529
  4. GLUCOPHAGE [Concomitant]
     Indication: TYPE 2 DIABETES MELLITUS
     Dosage: 500 MG, TID
     Route: 048
     Dates: start: 20110902
  5. CARVEDILOL [Suspect]
     Dosage: 12.5 MG, QD
     Route: 048
     Dates: start: 20110905
  6. GLUCOBAY [Concomitant]
     Dosage: 5 MG, TID
     Route: 048
     Dates: start: 20090827
  7. ZOLPIDEM TARTRATE [Concomitant]
     Indication: INSOMNIA
     Dosage: 100 MG, UNK
     Route: 048
     Dates: start: 20110122
  8. BROWN MIXTURE [Concomitant]
     Indication: COUGH
     Dosage: UNK
     Route: 048
     Dates: start: 20110905
  9. CARVEDILOL [Suspect]
     Indication: CARDIAC FAILURE CONGESTIVE
     Dosage: 6.25 MG, BID
     Route: 048
     Dates: start: 20110308
  10. BOKEY EMC [Concomitant]
     Indication: CARDIAC FAILURE CONGESTIVE
     Dosage: 100 MG, BID
     Route: 048
     Dates: start: 20060301
  11. LEVEMIR [Concomitant]
     Indication: TYPE 2 DIABETES MELLITUS
     Dosage: UNK
     Route: 058
     Dates: start: 20110629, end: 20110629
  12. ATENOLOL [Concomitant]
     Indication: HYPERTENSION
     Dosage: 5 MG, UNK
     Route: 048
     Dates: start: 20110905
  13. CRESTOR [Concomitant]
     Indication: HYPERLIPIDAEMIA
     Dosage: 10 MG, QD
     Route: 048
     Dates: start: 20110909
  14. VALSARTAN [Suspect]
     Indication: CARDIAC FAILURE CHRONIC
     Dosage: UNK
     Route: 048
     Dates: start: 20110201, end: 20110324
  15. VALSARTAN [Suspect]
     Dosage: UNK
     Route: 048
     Dates: start: 20110325, end: 20110903
  16. FUROSEMIDE [Suspect]
     Indication: CARDIAC FAILURE CONGESTIVE
     Dosage: 40 MG, QD
     Dates: start: 20110629
  17. TAMSULOSIN HCL [Concomitant]
     Indication: BENIGN PROSTATIC HYPERPLASIA
     Dosage: 0.2 MG, QD
     Route: 048
     Dates: start: 20100318
  18. VALSARTAN [Suspect]
     Dosage: CODE NOT BROKEN
     Route: 048
     Dates: start: 20110104, end: 20110130
  19. ENALAPRIL MALEATE [Suspect]
     Indication: CARDIAC FAILURE CHRONIC
     Dosage: CODE NOT BROKEN
     Route: 048
     Dates: start: 20101220, end: 20110102
  20. AMARYL [Concomitant]
     Indication: TYPE 2 DIABETES MELLITUS
     Dosage: UNK
     Dates: start: 20110308

REACTIONS (6)
  - ORTHOSTATIC HYPOTENSION [None]
  - HYPOVOLAEMIA [None]
  - DIZZINESS [None]
  - ATRIAL FIBRILLATION [None]
  - HAEMOTHORAX [None]
  - CONCOMITANT DISEASE PROGRESSION [None]
